FAERS Safety Report 12308924 (Version 2)
Quarter: 2016Q3

REPORT INFORMATION
  Report Type: Spontaneous
  Country: CO (occurrence: CO)
  Receive Date: 20160427
  Receipt Date: 20160913
  Transmission Date: 20161109
  Serious: Yes (Other)
  Sender: FDA-Public Use
  Company Number: CO-BAXTER-2016BAX020499

PATIENT
  Age: 25 Year
  Sex: Female

DRUGS (8)
  1. LACTATED RINGERS [Suspect]
     Active Substance: CALCIUM CHLORIDE\POTASSIUM CHLORIDE\SODIUM CHLORIDE\SODIUM LACTATE
     Indication: EYE IRRIGATION
     Route: 047
     Dates: start: 20160413, end: 20160413
  2. VIGAMOX [Concomitant]
     Active Substance: MOXIFLOXACIN HYDROCHLORIDE
     Indication: POSTOPERATIVE CARE
     Dosage: 1 DROP
     Route: 047
     Dates: start: 20160413
  3. CORTIOFTAL [Concomitant]
     Indication: POSTOPERATIVE CARE
     Dosage: 1 DROP
     Route: 047
     Dates: start: 20160413
  4. NEVANAC [Concomitant]
     Active Substance: NEPAFENAC
     Indication: POSTOPERATIVE CARE
     Dosage: 1 DROP
     Route: 047
     Dates: start: 20160413
  5. ACETAZOLAMIDE. [Concomitant]
     Active Substance: ACETAZOLAMIDE
     Indication: POSTOPERATIVE CARE
     Dosage: 1 TABLET
     Route: 048
     Dates: start: 20160413
  6. DISCOVISC [Suspect]
     Active Substance: CHONDROITIN SULFATE (BOVINE)\HYALURONATE SODIUM
     Indication: SUPPORTIVE CARE
     Route: 031
     Dates: start: 20160413
  7. TRYPAN BLUE [Suspect]
     Active Substance: TRYPAN BLUE
     Indication: OPHTHALMOLOGICAL EXAMINATION
     Route: 031
     Dates: start: 20160413
  8. LACTATED RINGERS [Suspect]
     Active Substance: CALCIUM CHLORIDE\POTASSIUM CHLORIDE\SODIUM CHLORIDE\SODIUM LACTATE
     Indication: OFF LABEL USE

REACTIONS (5)
  - Corneal oedema [Recovering/Resolving]
  - Condition aggravated [Recovering/Resolving]
  - Corneal degeneration [Recovering/Resolving]
  - Sensation of foreign body [Recovering/Resolving]
  - Vision blurred [Recovered/Resolved]

NARRATIVE: CASE EVENT DATE: 20160414
